FAERS Safety Report 7525662-1 (Version None)
Quarter: 2011Q2

REPORT INFORMATION
  Report Type: 
  Country: None (occurrence: None)
  Receive Date: 20110606
  Receipt Date: 20110524
  Transmission Date: 20111010
  Serious: Yes (Hospitalization)
  Sender: FDA-Public Use
  Company Number: PHHY2011US13329

PATIENT
  Sex: Female
  Weight: 37 kg

DRUGS (2)
  1. EXJADE [Suspect]
     Indication: IRON OVERLOAD
  2. EXJADE [Suspect]
     Indication: ACUTE MYELOID LEUKAEMIA
     Dosage: 750 MG, QD
     Route: 048
     Dates: start: 20090410

REACTIONS (6)
  - DIARRHOEA [None]
  - GASTRIC INFECTION [None]
  - NAUSEA [None]
  - PNEUMONIA [None]
  - VOMITING [None]
  - DYSPNOEA [None]
